FAERS Safety Report 17840875 (Version 1)
Quarter: 2020Q2

REPORT INFORMATION
  Report Type: Spontaneous
  Country: CA (occurrence: CA)
  Receive Date: 20200529
  Receipt Date: 20200529
  Transmission Date: 20200714
  Serious: Yes (Other)
  Sender: FDA-Public Use
  Company Number: CA-TEVA-2020-CA-1240906

PATIENT
  Age: 68 Year
  Sex: Male

DRUGS (17)
  1. VALPROIC ACID. [Suspect]
     Active Substance: VALPROIC ACID
     Indication: PRODUCT USED FOR UNKNOWN INDICATION
     Route: 065
  2. DIMENHYDRINATE. [Concomitant]
     Active Substance: DIMENHYDRINATE
     Dosage: 200 MILLIGRAM DAILY;
     Route: 048
  3. METHADONE HYDROCHLORIDE. [Concomitant]
     Active Substance: METHADONE HYDROCHLORIDE
     Route: 048
  4. METHADONE HYDROCHLORIDE. [Concomitant]
     Active Substance: METHADONE HYDROCHLORIDE
     Route: 048
  5. PHENYTOIN. [Suspect]
     Active Substance: PHENYTOIN
     Indication: PRODUCT USED FOR UNKNOWN INDICATION
     Route: 065
  6. LACTULOSE. [Concomitant]
     Active Substance: LACTULOSE
     Dosage: 60 ML DAILY;
     Route: 048
  7. MELATONIN [Concomitant]
     Active Substance: MELATONIN
     Route: 048
  8. MACROGOL 3350 [Concomitant]
     Active Substance: POLYETHYLENE GLYCOL 3350
     Dosage: 17 GRAM DAILY;
     Route: 048
  9. CARBAMAZEPINE. [Suspect]
     Active Substance: CARBAMAZEPINE
     Indication: PRODUCT USED FOR UNKNOWN INDICATION
     Route: 048
  10. CALCIUM SENNOSIDES A+ B [Concomitant]
     Dosage: 17.2 MILLIGRAM DAILY;
     Route: 048
  11. ANAKINRA [Suspect]
     Active Substance: ANAKINRA
     Indication: PRODUCT USED FOR UNKNOWN INDICATION
     Route: 058
  12. ACETAMINOPHEN. [Concomitant]
     Active Substance: ACETAMINOPHEN
     Dosage: 2000 MILLIGRAM DAILY;
     Route: 048
  13. UREA. [Concomitant]
     Active Substance: UREA
     Dosage: 2 DOSAGE FORMS DAILY;
     Route: 061
  14. EPOETIN ALFA [Suspect]
     Active Substance: ERYTHROPOIETIN
     Indication: NEPHROGENIC ANAEMIA
     Route: 042
  15. CLOBAZAM. [Concomitant]
     Active Substance: CLOBAZAM
     Dosage: 20 MILLIGRAM DAILY;
     Route: 048
  16. LORATADINE. [Concomitant]
     Active Substance: LORATADINE
     Dosage: 20 MILLIGRAM DAILY;
     Route: 048
  17. VENLAFAXINE HYDROCHLORIDE. [Concomitant]
     Active Substance: VENLAFAXINE HYDROCHLORIDE
     Dosage: 75 MILLIGRAM DAILY;
     Route: 048

REACTIONS (4)
  - Hyperparathyroidism [Recovered/Resolved]
  - Pancytopenia [Recovered/Resolved]
  - Anti-erythropoietin antibody negative [Recovered/Resolved]
  - Escherichia bacteraemia [Recovered/Resolved]
